FAERS Safety Report 19569933 (Version 1)
Quarter: 2021Q3

REPORT INFORMATION
  Report Type: Report from Study
  Country: FR (occurrence: FR)
  Receive Date: 20210715
  Receipt Date: 20210715
  Transmission Date: 20211014
  Serious: Yes (Other)
  Sender: FDA-Public Use
  Company Number: FR-TAKEDA-FR201850824

PATIENT
  Age: 55 Year
  Sex: Female

DRUGS (8)
  1. TEDUGLUTIDE [Suspect]
     Active Substance: TEDUGLUTIDE
     Indication: SHORT-BOWEL SYNDROME
     Dosage: 2.350 MILLIGRAM(0.0500 MG/KG), QD
     Route: 065
     Dates: start: 20160111, end: 20160720
  2. TEDUGLUTIDE [Suspect]
     Active Substance: TEDUGLUTIDE
     Indication: SHORT-BOWEL SYNDROME
     Dosage: 2.350 MILLIGRAM(0.0500 MG/KG), QD
     Route: 065
     Dates: start: 20160111, end: 20160720
  3. TEDUGLUTIDE [Suspect]
     Active Substance: TEDUGLUTIDE
     Indication: SHORT-BOWEL SYNDROME
     Dosage: 2.350 MILLIGRAM(0.0500 MG/KG), QD
     Route: 065
     Dates: start: 20160111, end: 20160720
  4. FERINJECT [Concomitant]
     Active Substance: FERRIC CARBOXYMALTOSE
     Indication: ANAEMIA
     Dosage: 1 GRAM,ONE DOSE
     Route: 042
     Dates: start: 20201207, end: 20201207
  5. FERINJECT [Concomitant]
     Active Substance: FERRIC CARBOXYMALTOSE
     Dosage: 500.00 MILLIGRAM, ONE DOSE
     Route: 042
     Dates: start: 20200918, end: 20200918
  6. TEDUGLUTIDE [Suspect]
     Active Substance: TEDUGLUTIDE
     Indication: SHORT-BOWEL SYNDROME
     Dosage: 2.350 MILLIGRAM(0.0500 MG/KG), QD
     Route: 065
     Dates: start: 20160111, end: 20160720
  7. DEBRIDAT [Concomitant]
     Active Substance: TRIMEBUTINE MALEATE
     Indication: ABDOMINAL DISTENSION
     Dosage: 1 DOSAGE FORM, TID
     Route: 048
     Dates: start: 20200608
  8. FERINJECT [Concomitant]
     Active Substance: FERRIC CARBOXYMALTOSE
     Dosage: 1 GRAM,ONE DOSE
     Dates: start: 20200908, end: 20200908

REACTIONS (1)
  - Hypokalaemia [Recovered/Resolved]

NARRATIVE: CASE EVENT DATE: 20170801
